FAERS Safety Report 7809129-9 (Version None)
Quarter: 2011Q4

REPORT INFORMATION
  Report Type: 
  Country: None (occurrence: None)
  Receive Date: 20111012
  Receipt Date: 20111004
  Transmission Date: 20120403
  Serious: Yes (Hospitalization)
  Sender: FDA-Public Use
  Company Number: US-JNJFOC-20111002648

PATIENT
  Sex: Female
  Weight: 63.5 kg

DRUGS (2)
  1. ORTHO EVRA [Suspect]
     Indication: CONTRACEPTION
     Route: 062
     Dates: start: 20060101
  2. ORTHO EVRA [Suspect]
     Indication: HAEMORRHAGE
     Route: 062
     Dates: start: 20060101

REACTIONS (3)
  - ARTHROPATHY [None]
  - ARTHRITIS [None]
  - OFF LABEL USE [None]
